FAERS Safety Report 12247329 (Version 1)
Quarter: 2016Q2

REPORT INFORMATION
  Report Type: Spontaneous
  Country: TR (occurrence: TR)
  Receive Date: 20160407
  Receipt Date: 20160407
  Transmission Date: 20160815
  Serious: Yes (Other)
  Sender: FDA-Public Use
  Company Number: PHHY2016TR042552

PATIENT
  Age: 5 Year
  Sex: Female

DRUGS (1)
  1. CYPROHEPTADINE. [Suspect]
     Active Substance: CYPROHEPTADINE
     Indication: APPETITE DISORDER
     Dosage: 4 MG, QD
     Route: 065

REACTIONS (1)
  - Obsessive-compulsive disorder [Recovered/Resolved]
